FAERS Safety Report 10533539 (Version 2)
Quarter: 2014Q4

REPORT INFORMATION
  Report Type: Report from Study
  Country: SK (occurrence: SK)
  Receive Date: 20141022
  Receipt Date: 20141028
  Transmission Date: 20150529
  Serious: Yes (Hospitalization, Other)
  Sender: FDA-Public Use
  Company Number: SK-ASTELLAS-2014EU013411

PATIENT
  Age: 52 Year
  Sex: Female

DRUGS (14)
  1. SOLIFENACIN-MIRABEGRON [Suspect]
     Active Substance: MIRABEGRON\SOLIFENACIN
     Indication: HYPERTONIC BLADDER
     Dosage: UNK, ONCE DAILY
     Route: 048
     Dates: start: 20140910
  2. PERINDOPRIL [Concomitant]
     Active Substance: PERINDOPRIL
     Dosage: 4 MG, UNK
     Route: 048
     Dates: start: 20140918, end: 20140918
  3. IBALGIN [Concomitant]
     Active Substance: IBUPROFEN
     Indication: SPINAL PAIN
     Route: 048
     Dates: start: 1993
  4. INDAPAMID [Concomitant]
     Active Substance: INDAPAMIDE
     Indication: HYPERTENSION
     Route: 048
     Dates: start: 2012, end: 20140917
  5. NOVALGIN [Concomitant]
     Active Substance: METAMIZOLE SODIUM
     Indication: SPINAL PAIN
     Route: 042
     Dates: start: 20140918, end: 20140918
  6. PRENESSA [Concomitant]
     Active Substance: PERINDOPRIL
     Indication: HYPERTENSION
     Route: 048
     Dates: start: 20140919
  7. PRENESSA [Concomitant]
     Active Substance: PERINDOPRIL
     Indication: HYPERTENSIVE CRISIS
     Dosage: 4 MG, UNK
     Route: 048
     Dates: start: 20140918, end: 20140918
  8. INDAPAMID [Concomitant]
     Active Substance: INDAPAMIDE
     Indication: HYPERTENSIVE CRISIS
     Dosage: 2.5 MG UNKNOWN FREQ
     Route: 048
     Dates: start: 20140919
  9. INDAPAMID [Concomitant]
     Active Substance: INDAPAMIDE
     Route: 048
     Dates: start: 20140918, end: 20140918
  10. PERINDOPRIL [Concomitant]
     Active Substance: PERINDOPRIL
     Indication: HYPERTENSION
     Route: 048
     Dates: start: 2012, end: 20140917
  11. PERINDOPRIL [Concomitant]
     Active Substance: PERINDOPRIL
     Indication: HYPERTENSIVE CRISIS
     Route: 048
     Dates: start: 20140919
  12. DORSIFLEX                          /00167701/ [Concomitant]
     Indication: SPINAL PAIN
     Route: 048
     Dates: start: 20140918, end: 20140918
  13. AFFAMIL [Concomitant]
     Indication: SPINAL PAIN
     Route: 048
     Dates: start: 20140918, end: 20140918
  14. NOVALGIN [Concomitant]
     Active Substance: METAMIZOLE SODIUM
     Route: 048
     Dates: start: 20140919

REACTIONS (1)
  - Hypertensive crisis [Recovered/Resolved]

NARRATIVE: CASE EVENT DATE: 20140918
